FAERS Safety Report 25024399 (Version 5)
Quarter: 2025Q2

REPORT INFORMATION
  Report Type: Spontaneous
  Country: DE (occurrence: DE)
  Receive Date: 20250228
  Receipt Date: 20250402
  Transmission Date: 20250717
  Serious: Yes (Death, Other)
  Sender: ALEXION PHARMACEUTICALS
  Company Number: DE-002147023-NVSC2020DE194454

PATIENT

DRUGS (12)
  1. FULVESTRANT [Suspect]
     Active Substance: FULVESTRANT
     Indication: Product used for unknown indication
     Route: 065
  2. FULVESTRANT [Suspect]
     Active Substance: FULVESTRANT
     Route: 065
  3. CAPECITABINE [Suspect]
     Active Substance: CAPECITABINE
     Indication: Product used for unknown indication
     Route: 065
  4. CAPECITABINE [Suspect]
     Active Substance: CAPECITABINE
     Route: 065
  5. CAPECITABINE [Suspect]
     Active Substance: CAPECITABINE
     Route: 065
  6. LETROZOLE [Suspect]
     Active Substance: LETROZOLE
     Indication: Breast cancer metastatic
     Dosage: 2.5 MG, QD
  7. PACLITAXEL [Suspect]
     Active Substance: PACLITAXEL
     Indication: Product used for unknown indication
     Dosage: 125 MG/M2, QW (14 / 18X) (Q 7 DAYS )
     Route: 065
  8. PACLITAXEL [Suspect]
     Active Substance: PACLITAXEL
     Dosage: 125 MG/M2, QW, (14 /  18X) (Q 7 DAYS ), START DATE: SEP-2019)
     Route: 065
  9. IBANDRONATE SODIUM [Suspect]
     Active Substance: IBANDRONATE SODIUM
     Indication: Product used for unknown indication
     Route: 065
  10. IBANDRONATE SODIUM [Suspect]
     Active Substance: IBANDRONATE SODIUM
     Route: 065
  11. KISQALI [Suspect]
     Active Substance: RIBOCICLIB
     Indication: Breast cancer metastatic
  12. KISQALI [Suspect]
     Active Substance: RIBOCICLIB
     Indication: Breast cancer metastatic

REACTIONS (10)
  - Polyneuropathy [Fatal]
  - Neoplasm malignant [Fatal]
  - Metastases to liver [Fatal]
  - Metastases to lung [Fatal]
  - Breast cancer metastatic [Fatal]
  - Malignant neoplasm progression [Fatal]
  - Metastases to the mediastinum [Fatal]
  - Ascites [Fatal]
  - Pericardial effusion [Not Recovered/Not Resolved]
  - Pleural effusion [Not Recovered/Not Resolved]
